FAERS Safety Report 17448883 (Version 5)
Quarter: 2020Q2

REPORT INFORMATION
  Report Type: Report from Study
  Country: CN (occurrence: CN)
  Receive Date: 20200224
  Receipt Date: 20200608
  Transmission Date: 20200713
  Serious: Yes (Hospitalization)
  Sender: FDA-Public Use
  Company Number: CN-ROCHE-2554463

PATIENT
  Age: 69 Year
  Sex: Female
  Weight: 58 kg

DRUGS (7)
  1. BEVACIZUMAB. [Suspect]
     Active Substance: BEVACIZUMAB
     Route: 041
     Dates: start: 20200304
  2. LANSOPRAZOLE. [Concomitant]
     Active Substance: LANSOPRAZOLE
     Route: 048
  3. CEFACLOR. [Concomitant]
     Active Substance: CEFACLOR
     Route: 048
  4. LEUCOGEN [Concomitant]
     Active Substance: LEUCOGEN
     Route: 048
  5. ATEZOLIZUMAB. [Suspect]
     Active Substance: ATEZOLIZUMAB
     Route: 041
     Dates: start: 20200304
  6. ATEZOLIZUMAB. [Suspect]
     Active Substance: ATEZOLIZUMAB
     Indication: MALIGNANT MELANOMA
     Dosage: DATE OF MOST RECENT DOSE OF ATEZOLIZUMAB PRIOR TO THE EVENT ONSET: 04/FEB/2020.(1200 MG)
     Route: 041
     Dates: start: 20200204, end: 20200218
  7. BEVACIZUMAB. [Suspect]
     Active Substance: BEVACIZUMAB
     Indication: MALIGNANT MELANOMA
     Dosage: DATE OF MOST RECENT DOSE OF BEVACIZUMAB PRIOR TO THE EVENT ONSET: 04/FEB/2020 (435 MG)
     Route: 042
     Dates: start: 20200204

REACTIONS (1)
  - Bronchitis [Recovered/Resolved]

NARRATIVE: CASE EVENT DATE: 20200217
